FAERS Safety Report 8981846 (Version 1)
Quarter: 2012Q4

REPORT INFORMATION
  Report Type: 
  Country: IT (occurrence: IT)
  Receive Date: 20121223
  Receipt Date: 20121223
  Transmission Date: 20130627
  Serious: Yes (Hospitalization)
  Sender: FDA-Public Use
  Company Number: PHHY2012IT118474

PATIENT
  Age: 53 Year
  Sex: Female

DRUGS (1)
  1. ZOMETA [Suspect]
     Indication: OSTEOPOROSIS
     Dosage: 4 mg, QMO
     Route: 042
     Dates: start: 20040401, end: 20070201

REACTIONS (1)
  - Osteonecrosis of jaw [Recovering/Resolving]
